FAERS Safety Report 5070199-5 (Version None)
Quarter: 2006Q3

REPORT INFORMATION
  Report Type: 
  Country: None (occurrence: None)
  Receive Date: 20060714
  Receipt Date: 20060410
  Transmission Date: 20061208
  Serious: No
  Sender: FDA-Public Use
  Company Number: 2006SP001613

PATIENT
  Age: 70 Year
  Sex: Male
  Weight: 119.296 kg

DRUGS (6)
  1. LUNESTA [Suspect]
     Indication: INSOMNIA
     Dosage: 2 MG;HS;ORAL
     Route: 048
     Dates: start: 20060331, end: 20060408
  2. ANTIHYPERTENSIVES [Concomitant]
  3. POTASSIUM [Concomitant]
  4. WATER PILLS [Concomitant]
  5. MOBIC [Concomitant]
  6. TYLENOL [Concomitant]

REACTIONS (2)
  - DRUG INEFFECTIVE [None]
  - MIDDLE INSOMNIA [None]
